FAERS Safety Report 7559586-0 (Version None)
Quarter: 2011Q2

REPORT INFORMATION
  Report Type: 
  Country: None (occurrence: None)
  Receive Date: 20110617
  Receipt Date: 20110617
  Transmission Date: 20111010
  Serious: Yes (Hospitalization)
  Sender: FDA-Public Use
  Company Number: None

PATIENT
  Age: 90 Year
  Sex: Female
  Weight: 48.0813 kg

DRUGS (1)
  1. LEVAQUIN [Suspect]
     Indication: PULMONARY CONGESTION
     Dosage: ONE DAILY PO
     Route: 048
     Dates: start: 20110606, end: 20110612

REACTIONS (2)
  - MELAENA [None]
  - ABDOMINAL PAIN UPPER [None]
